FAERS Safety Report 4640016-3 (Version None)
Quarter: 2005Q2

REPORT INFORMATION
  Report Type: 
  Country: None (occurrence: None)
  Receive Date: 20050415
  Receipt Date: 20050408
  Transmission Date: 20051028
  Serious: Yes (Life-Threatening, Hospitalization)
  Sender: FDA-Public Use
  Company Number: US015050

PATIENT
  Age: 55 Year
  Sex: Male

DRUGS (4)
  1. ALERTEC [Suspect]
     Dosage: 100 MG BID ORAL
     Route: 048
     Dates: start: 20031126, end: 20040208
  2. ALERTEC [Suspect]
     Dosage: 400 MG BID ORAL
     Route: 048
     Dates: start: 20040209, end: 20040516
  3. ANTIHYPERTENSIVE [Concomitant]
  4. CHOLESTEROL LOWERING [Concomitant]

REACTIONS (2)
  - ANGINA PECTORIS [None]
  - MYOCARDIAL INFARCTION [None]
